FAERS Safety Report 11216017 (Version 2)
Quarter: 2015Q3

REPORT INFORMATION
  Report Type: Spontaneous
  Country: GB (occurrence: GB)
  Receive Date: 20150624
  Receipt Date: 20150702
  Transmission Date: 20151125
  Serious: Yes (Hospitalization)
  Sender: FDA-Public Use
  Company Number: GB-GE HEALTHCARE MEDICAL DIAGNOSTICS-OMPQ-PR-1506S-0933

PATIENT
  Age: 38 Year
  Sex: Male
  Weight: 49.6 kg

DRUGS (2)
  1. OMNIPAQUE [Suspect]
     Active Substance: IOHEXOL
     Indication: ARTERIOVENOUS FISTULA OCCLUSION
     Route: 042
     Dates: start: 20150615, end: 20150615
  2. OMNIPAQUE [Suspect]
     Active Substance: IOHEXOL
     Indication: THERAPEUTIC PROCEDURE

REACTIONS (4)
  - Blister [Recovered/Resolved]
  - Malaise [Recovered/Resolved]
  - Dyspnoea [Recovered/Resolved]
  - Rash [Recovered/Resolved]

NARRATIVE: CASE EVENT DATE: 20150615
